FAERS Safety Report 6638262-2 (Version None)
Quarter: 2010Q1

REPORT INFORMATION
  Report Type: 
  Country: None (occurrence: None)
  Receive Date: 20100317
  Receipt Date: 20100308
  Transmission Date: 20100710
  Serious: Yes (Hospitalization)
  Sender: FDA-Public Use
  Company Number: RU-ROCHE-687677

PATIENT
  Sex: Female

DRUGS (10)
  1. TRASTUZUMAB [Suspect]
     Indication: BREAST CANCER
     Dosage: LOADING DOSE
     Route: 042
  2. TRASTUZUMAB [Suspect]
     Dosage: MAINTENANCE DOSE
     Route: 042
     Dates: start: 20090226
  3. TRASTUZUMAB [Suspect]
     Route: 042
     Dates: start: 20091008
  4. LAPATINIB [Suspect]
     Indication: BREAST CANCER
     Route: 048
     Dates: start: 20090226
  5. LAPATINIB [Suspect]
     Route: 048
     Dates: start: 20091008
  6. PACLITAXEL [Suspect]
     Indication: BREAST CANCER
     Route: 042
     Dates: start: 20090423
  7. PACLITAXEL [Suspect]
     Route: 042
     Dates: start: 20091008
  8. FLUOROURACIL [Concomitant]
     Indication: BREAST CANCER
     Route: 042
     Dates: start: 20090804
  9. ETOPOSIDE [Concomitant]
     Indication: BREAST CANCER
     Route: 042
     Dates: start: 20090804
  10. CYCLOPHOSPHAMIDE [Concomitant]
     Indication: BREAST CANCER
     Route: 042
     Dates: start: 20090804

REACTIONS (3)
  - ARTERIOSCLEROSIS CORONARY ARTERY [None]
  - CARDIAC FAILURE CONGESTIVE [None]
  - MYOCARDIAL ISCHAEMIA [None]
